FAERS Safety Report 8925602 (Version 2)
Quarter: 2013Q1

REPORT INFORMATION
  Report Type: Spontaneous
  Country: US (occurrence: US)
  Receive Date: 20121126
  Receipt Date: 20130212
  Transmission Date: 20140127
  Serious: Yes (Hospitalization)
  Sender: FDA-Public Use
  Company Number: US-BAYER-2012-121903

PATIENT
  Age: 38 Year
  Sex: Female
  Weight: 115.8 kg

DRUGS (7)
  1. YAZ [Suspect]
     Indication: CONTRACEPTION
  2. YASMIN [Suspect]
  3. PACKED RED BLOOD CELLS [Concomitant]
  4. AZITHROMYCIN [Concomitant]
     Dosage: 250 MG
  5. PROMETHAZINE [Concomitant]
     Dosage: 250 MG
  6. FERROUS SULFATE [Concomitant]
     Dosage: 325 MG, TID
  7. DIFLUCAN [Concomitant]
     Dosage: 150 MG, 1 TABLET NOW AND ONE IN 72 HOURS
     Route: 048

REACTIONS (2)
  - Pulmonary embolism [None]
  - Deep vein thrombosis [None]
